FAERS Safety Report 15195136 (Version 1)
Quarter: 2018Q3

REPORT INFORMATION
  Report Type: Spontaneous
  Country: JP (occurrence: JP)
  Receive Date: 20180725
  Receipt Date: 20180725
  Transmission Date: 20181010
  Serious: Yes (Other)
  Sender: FDA-Public Use
  Company Number: JP-PFIZER INC-2018292458

PATIENT
  Age: 62 Year

DRUGS (4)
  1. IBRANCE [Suspect]
     Active Substance: PALBOCICLIB
     Dosage: 100 MG, UNK
  2. LOXONIN [Concomitant]
     Active Substance: LOXOPROFEN SODIUM
  3. METGLUCO [Concomitant]
     Active Substance: METFORMIN HYDROCHLORIDE
  4. RANMARK [Concomitant]
     Active Substance: DENOSUMAB

REACTIONS (1)
  - Renal impairment [Unknown]
